FAERS Safety Report 11247886 (Version 1)
Quarter: 2015Q3

REPORT INFORMATION
  Report Type: Spontaneous
  Country: CA (occurrence: CA)
  Receive Date: 20150708
  Receipt Date: 20150708
  Transmission Date: 20151125
  Serious: Yes (Hospitalization, Other)
  Sender: FDA-Public Use
  Company Number: CA-HOSPIRA-2742761

PATIENT
  Age: 73 Year
  Sex: Male

DRUGS (3)
  1. MORPHINE SULPHATE [Suspect]
     Active Substance: MORPHINE SULFATE
     Indication: LOCALISED INFECTION
     Dosage: NOT REPORTED
     Route: 065
  2. MORPHINE SULPHATE [Suspect]
     Active Substance: MORPHINE SULFATE
     Indication: THERMAL BURN
     Dosage: NOT REPORTED
     Route: 065
  3. DIANEAL WITH DEXTROSE [Suspect]
     Active Substance: CALCIUM CHLORIDE\DEXTROSE MONOHYDRATE\MAGNESIUM CHLORIDE\SODIUM CHLORIDE\SODIUM LACTATE
     Indication: PERITONEAL DIALYSIS
     Dosage: NOT REPORTED
     Route: 033

REACTIONS (7)
  - Fall [Unknown]
  - Visual impairment [Unknown]
  - Balance disorder [Unknown]
  - Hallucination, visual [Unknown]
  - Thermal burn [Unknown]
  - Dizziness [Unknown]
  - Localised infection [Unknown]
